FAERS Safety Report 13888043 (Version 2)
Quarter: 2017Q3

REPORT INFORMATION
  Report Type: Spontaneous
  Country: US (occurrence: US)
  Receive Date: 20170821
  Receipt Date: 20170828
  Transmission Date: 20171127
  Serious: Yes (Other)
  Sender: FDA-Public Use
  Company Number: US-PFIZER INC-2017353430

PATIENT
  Sex: Female

DRUGS (2)
  1. GABAPENTIN. [Suspect]
     Active Substance: GABAPENTIN
     Dosage: UNK
  2. ENBREL [Suspect]
     Active Substance: ETANERCEPT
     Dosage: UNK

REACTIONS (8)
  - Myelopathy [Unknown]
  - Osteoarthritis [Unknown]
  - Musculoskeletal stiffness [Unknown]
  - Joint warmth [Unknown]
  - Joint contracture [Unknown]
  - Joint swelling [Unknown]
  - Joint effusion [Unknown]
  - Arthropathy [Unknown]
